FAERS Safety Report 25515229 (Version 3)
Quarter: 2025Q3

REPORT INFORMATION
  Report Type: Report from Study
  Country: US (occurrence: US)
  Receive Date: 20250704
  Receipt Date: 20250822
  Transmission Date: 20251021
  Serious: Yes (Hospitalization, Other)
  Sender: ALEXION PHARMACEUTICALS
  Company Number: US-AstraZeneca-CH-00899587A

PATIENT
  Sex: Male
  Weight: 156.46 kg

DRUGS (1)
  1. ULTOMIRIS [Suspect]
     Active Substance: RAVULIZUMAB-CWVZ
     Indication: Myasthenia gravis
     Dates: start: 20240906, end: 20250513

REACTIONS (19)
  - Osteomyelitis [Unknown]
  - Myasthenia gravis crisis [Unknown]
  - Choking [Unknown]
  - Sleep disorder [Unknown]
  - Blood lactic acid increased [Unknown]
  - Weight decreased [Unknown]
  - Panic attack [Unknown]
  - Mastication disorder [Unknown]
  - Dysarthria [Unknown]
  - Dysphagia [Unknown]
  - Fatigue [Recovering/Resolving]
  - Asthenia [Unknown]
  - Loss of personal independence in daily activities [Unknown]
  - Dyspnoea [Unknown]
  - General physical health deterioration [Unknown]
  - Urinary incontinence [Unknown]
  - Anal incontinence [Unknown]
  - Muscle fatigue [Unknown]
  - Memory impairment [Unknown]
